FAERS Safety Report 6490029-4 (Version None)
Quarter: 2009Q4

REPORT INFORMATION
  Report Type: 
  Country: None (occurrence: None)
  Receive Date: 20091210
  Receipt Date: 20091210
  Transmission Date: 20100525
  Serious: Yes (Other)
  Sender: FDA-Public Use
  Company Number: None

PATIENT
  Age: 52 Year
  Sex: Female

DRUGS (1)
  1. LANSOPRAZOLE [Suspect]
     Dosage: 30 MG BID ORAL
     Route: 048

REACTIONS (5)
  - CONSTIPATION [None]
  - ERUCTATION [None]
  - GASTROOESOPHAGEAL REFLUX DISEASE [None]
  - HICCUPS [None]
  - SLEEP DISORDER [None]
